FAERS Safety Report 6389021-X (Version None)
Quarter: 2009Q4

REPORT INFORMATION
  Report Type: 
  Country: None (occurrence: None)
  Receive Date: 20091001
  Receipt Date: 20080307
  Transmission Date: 20100525
  Serious: Yes (Hospitalization)
  Sender: FDA-Public Use
  Company Number: UTC-000223

PATIENT
  Age: 55 Year
  Sex: Female

DRUGS (6)
  1. REMODULIN [Suspect]
     Indication: PULMONARY ARTERIAL HYPERTENSION
     Dosage: 220.32 UG/KG (0.153 UG/KG, 1 IN 1 MIN), INTRAVENOUS
     Route: 042
     Dates: start: 20060101
  2. METHOTREXATE [Concomitant]
  3. COUMADIN [Concomitant]
  4. PROCARDIA [Concomitant]
  5. HUMIRA [Concomitant]
  6. PREDNISONE TAB [Concomitant]

REACTIONS (4)
  - DEVICE RELATED INFECTION [None]
  - EAR INFECTION [None]
  - INFLUENZA LIKE ILLNESS [None]
  - PNEUMONIA [None]
